FAERS Safety Report 21736862 (Version 2)
Quarter: 2022Q4

REPORT INFORMATION
  Report Type: Spontaneous
  Country: JP (occurrence: JP)
  Receive Date: 20221216
  Receipt Date: 20221230
  Transmission Date: 20230113
  Serious: Yes (Hospitalization)
  Sender: FDA-Public Use
  Company Number: JP-JNJFOC-20221226641

PATIENT
  Age: 5 Decade
  Sex: Male

DRUGS (6)
  1. HALOMONTH [Suspect]
     Active Substance: HALOPERIDOL DECANOATE
     Indication: Schizophrenia
     Route: 030
     Dates: end: 20221215
  2. HALOMONTH [Suspect]
     Active Substance: HALOPERIDOL DECANOATE
     Route: 030
  3. HALOPERIDOL [Suspect]
     Active Substance: HALOPERIDOL
     Indication: Schizophrenia
     Route: 030
     Dates: end: 20221215
  4. HALOPERIDOL [Suspect]
     Active Substance: HALOPERIDOL
     Indication: Schizophrenia
     Route: 041
     Dates: start: 20221208, end: 20221215
  5. AKINETON [Suspect]
     Active Substance: BIPERIDEN HYDROCHLORIDE
     Indication: Schizophrenia
     Route: 030
  6. BLONANSERIN [Concomitant]
     Active Substance: BLONANSERIN
     Indication: Schizophrenia
     Route: 051
     Dates: start: 20221216

REACTIONS (4)
  - Hospitalisation [Unknown]
  - Screaming [Unknown]
  - Overdose [Unknown]
  - Refusal of treatment by patient [Not Recovered/Not Resolved]

NARRATIVE: CASE EVENT DATE: 20221208
